FAERS Safety Report 7042135-3 (Version None)
Quarter: 2010Q4

REPORT INFORMATION
  Report Type: 
  Country: None (occurrence: None)
  Receive Date: 20101013
  Receipt Date: 20091202
  Transmission Date: 20110411
  Serious: No
  Sender: FDA-Public Use
  Company Number: US-ASTRAZENECA-2009SE30019

PATIENT
  Age: 42 Year
  Sex: Female
  Weight: 95.3 kg

DRUGS (1)
  1. SYMBICORT [Suspect]
     Dosage: 640 MCG, BID
     Route: 055
     Dates: start: 20090530

REACTIONS (2)
  - FOOD ALLERGY [None]
  - LATEX ALLERGY [None]
